FAERS Safety Report 5168947-9 (Version None)
Quarter: 2006Q4

REPORT INFORMATION
  Report Type: 
  Country: None (occurrence: None)
  Receive Date: 20061211
  Receipt Date: 20061206
  Transmission Date: 20070319
  Serious: Yes (Life-Threatening, Hospitalization, Other)
  Sender: FDA-Public Use
  Company Number: US-GLAXOSMITHKLINE-A0630632A

PATIENT
  Age: 87 Year
  Sex: Female

DRUGS (6)
  1. COREG [Suspect]
     Dosage: 3.125MG TWICE PER DAY
     Route: 048
     Dates: start: 20061115
  2. LISINOPRIL [Concomitant]
  3. LEVOXYL [Concomitant]
  4. DIGOXIN [Concomitant]
  5. UNKNOWN MEDICATION [Concomitant]
  6. INHALER [Concomitant]

REACTIONS (3)
  - ANAPHYLACTIC REACTION [None]
  - ANGIONEUROTIC OEDEMA [None]
  - RESPIRATORY DISTRESS [None]
